FAERS Safety Report 5369486-2 (Version None)
Quarter: 2007Q2

REPORT INFORMATION
  Report Type: 
  Country: None (occurrence: None)
  Receive Date: 20070621
  Receipt Date: 20070612
  Transmission Date: 20071010
  Serious: Yes (Hospitalization)
  Sender: FDA-Public Use
  Company Number: US-CVT-070123

PATIENT
  Age: 69 Year
  Sex: Male
  Weight: 78.5 kg

DRUGS (17)
  1. RANEXA [Suspect]
     Indication: CORONARY ARTERY DISEASE
     Dosage: 500 MG, BID, ORAL
     Route: 048
     Dates: start: 20070401, end: 20070420
  2. COZAAR [Concomitant]
  3. TOPROL-XL [Concomitant]
  4. INDUR (ISOSORBIDE MONONITRATE) [Concomitant]
  5. LASIX/0032601/ (FUROSEMIDE) [Concomitant]
  6. NORVASC/00972401 (AMLODIPINE) [Concomitant]
  7. PHOSLO [Concomitant]
  8. VICODIN [Concomitant]
  9. NEPHRO-VITE (VITAMINS NOS) [Concomitant]
  10. KAYEXALATE [Concomitant]
  11. RANITIDINE/00550801 (RANITIDINE) [Concomitant]
  12. LANTUS [Concomitant]
  13. ASPIRIN [Concomitant]
  14. HUMALOG [Concomitant]
  15. LIPITOR/01326101/ (ATORVASTATIN) [Concomitant]
  16. SYNTHROID [Concomitant]
  17. PHENERGAN/00033001/ (PROMETHAZINE) [Concomitant]

REACTIONS (8)
  - ANAEMIA [None]
  - BLOOD CREATININE INCREASED [None]
  - BLOOD GLUCOSE INCREASED [None]
  - BLOOD POTASSIUM INCREASED [None]
  - BLOOD SODIUM DECREASED [None]
  - BLOOD UREA INCREASED [None]
  - CONFUSIONAL STATE [None]
  - DELIRIUM [None]
